FAERS Safety Report 4970263-2 (Version None)
Quarter: 2006Q2

REPORT INFORMATION
  Report Type: 
  Country: None (occurrence: None)
  Receive Date: 20060406
  Receipt Date: 20060331
  Transmission Date: 20061013
  Serious: Yes (Life-Threatening)
  Sender: FDA-Public Use
  Company Number: 2006-140588-NL

PATIENT
  Age: 1 Month
  Sex: Female

DRUGS (1)
  1. ROCURONIUM BROMIDE [Suspect]
     Dosage: DF

REACTIONS (5)
  - BLOOD LACTIC ACID INCREASED [None]
  - BLOOD PRESSURE DECREASED [None]
  - CIRCULATORY COLLAPSE [None]
  - HEART RATE INCREASED [None]
  - SEPSIS [None]
